FAERS Safety Report 7640053-0 (Version None)
Quarter: 2011Q3

REPORT INFORMATION
  Report Type: 
  Country: None (occurrence: None)
  Receive Date: 20110727
  Receipt Date: 20110719
  Transmission Date: 20111222
  Serious: Yes (Other)
  Sender: FDA-Public Use
  Company Number: AR-GILEAD-2011-0042075

PATIENT
  Age: 47 Year
  Sex: Female
  Weight: 62 kg

DRUGS (3)
  1. ADEFOVIR DIPIVOXIL KIT [Suspect]
     Indication: HEPATITIS B
     Dates: start: 20060101
  2. ENTECAVIR [Concomitant]
     Indication: HEPATITIS B
  3. TENOFOVIR DISOPROXIL FUMARATE [Suspect]
     Indication: HEPATITIS B

REACTIONS (3)
  - HEPATITIS B DNA INCREASED [None]
  - GENOTYPE DRUG RESISTANCE TEST POSITIVE [None]
  - NO THERAPEUTIC RESPONSE [None]
